FAERS Safety Report 7706825-9 (Version None)
Quarter: 2011Q3

REPORT INFORMATION
  Report Type: 
  Country: None (occurrence: None)
  Receive Date: 20110818
  Receipt Date: 20110815
  Transmission Date: 20111222
  Serious: Yes (Death)
  Sender: FDA-Public Use
  Company Number: 2011SP038232

PATIENT
  Age: 22 Year
  Sex: Female

DRUGS (4)
  1. MIRTAZAPINE [Suspect]
     Indication: PRODUCT USED FOR UNKNOWN INDICATION
  2. DOXYLAMINE SUCCINATE [Suspect]
     Indication: PRODUCT USED FOR UNKNOWN INDICATION
  3. CODEINE SULFATE [Suspect]
     Indication: PRODUCT USED FOR UNKNOWN INDICATION
  4. METHYLENEDIOXYMETHAMPHETAMINE (METHHYLENEDIOXYMETHAMPHETAMINE) [Suspect]
     Indication: PRODUCT USED FOR UNKNOWN INDICATION

REACTIONS (2)
  - CARBON MONOXIDE POISONING [None]
  - DRUG INTERACTION [None]
